FAERS Safety Report 25388111 (Version 2)
Quarter: 2025Q3

REPORT INFORMATION
  Report Type: Spontaneous
  Country: CH (occurrence: CH)
  Receive Date: 20250603
  Receipt Date: 20250730
  Transmission Date: 20251020
  Serious: Yes (Other)
  Sender: Unknown Manufacturer
  Company Number: CH-CDSU_IT-CH-MEN-114175

PATIENT

DRUGS (3)
  1. ORITAVANCIN [Suspect]
     Active Substance: ORITAVANCIN
     Indication: Alpha haemolytic streptococcal infection
     Route: 042
     Dates: start: 20250512, end: 20250512
  2. ORITAVANCIN [Suspect]
     Active Substance: ORITAVANCIN
     Indication: Staphylococcal infection
  3. ORITAVANCIN [Suspect]
     Active Substance: ORITAVANCIN
     Indication: Abdominal wall infection

REACTIONS (2)
  - Infusion site thrombosis [Not Recovered/Not Resolved]
  - Product use in unapproved indication [Recovered/Resolved]

NARRATIVE: CASE EVENT DATE: 20250501
